FAERS Safety Report 21790604 (Version 1)
Quarter: 2022Q4

REPORT INFORMATION
  Report Type: Report from Study
  Country: US (occurrence: US)
  Receive Date: 20221228
  Receipt Date: 20221228
  Transmission Date: 20230112
  Serious: No
  Sender: FDA-Public Use
  Company Number: US-CLOVIS ONCOLOGY-CLO-2022-000689

PATIENT
  Age: 48 Year
  Sex: Female

DRUGS (2)
  1. RUBRACA [Suspect]
     Active Substance: RUCAPARIB CAMSYLATE
     Indication: Fallopian tube cancer
     Dosage: 500 MILLIGRAM, BID
     Route: 048
     Dates: start: 20220411
  2. RUBRACA [Suspect]
     Active Substance: RUCAPARIB CAMSYLATE
     Indication: Fallopian tube cancer
     Dosage: 500 MILLIGRAM, BID
     Route: 048
     Dates: start: 20220609

REACTIONS (10)
  - Mobility decreased [Unknown]
  - Pain [Unknown]
  - Liver function test increased [Unknown]
  - Blood potassium decreased [Not Recovered/Not Resolved]
  - Memory impairment [Not Recovered/Not Resolved]
  - Insomnia [Unknown]
  - Dyspepsia [Not Recovered/Not Resolved]
  - Fatigue [Not Recovered/Not Resolved]
  - Taste disorder [Not Recovered/Not Resolved]
  - White blood cell count decreased [Unknown]

NARRATIVE: CASE EVENT DATE: 20221101
